FAERS Safety Report 4846621-3 (Version None)
Quarter: 2005Q4

REPORT INFORMATION
  Report Type: 
  Country: None (occurrence: None)
  Receive Date: 20051202
  Receipt Date: 20051124
  Transmission Date: 20060501
  Serious: Yes (Death)
  Sender: FDA-Public Use
  Company Number: 2005JP002270

PATIENT
  Age: 81 Year
  Sex: Female

DRUGS (2)
  1. PROGRAD(TACROLIMUS) CAPSULE [Suspect]
     Indication: MYASTHENIA GRAVIS
     Dosage: 3.00 MG, D, ORAL
     Route: 048
     Dates: end: 20050101
  2. PREDNISOLONE [Suspect]
     Dosage: 30.00 MG, D, ORAL
     Route: 048
     Dates: end: 20050101

REACTIONS (4)
  - CRYPTOCOCCOSIS [None]
  - CYTOMEGALOVIRUS INFECTION [None]
  - MENINGITIS CRYPTOCOCCAL [None]
  - PNEUMOCYSTIS JIROVECI PNEUMONIA [None]
